FAERS Safety Report 7222029-0 (Version None)
Quarter: 2011Q1

REPORT INFORMATION
  Report Type: 
  Country: None (occurrence: None)
  Receive Date: 20110104
  Receipt Date: 20101220
  Transmission Date: 20110831
  Serious: Yes (Hospitalization)
  Sender: FDA-Public Use
  Company Number: DSM-2010-01845

PATIENT
  Age: 86 Year
  Sex: Female

DRUGS (7)
  1. PREVISCAN (FLUINDIONE) (FLUINDIONE) [Concomitant]
  2. COVERSYL (PERINDOPRIL) (PERINDOPRIL) [Concomitant]
  3. ALTEIS (OLMESARTAN MEDOXOMIL) (TABLET) (OLMESARTAN MEDOXOMIL) [Suspect]
     Indication: PRODUCT USED FOR UNKNOWN INDICATION
     Dosage: ORAL
     Route: 048
     Dates: start: 20101019, end: 20101109
  4. ATORVASTATIN CALCIUM [Concomitant]
  5. PARACETAMOL (PARACETAMOL) (PARACETAMOL) [Concomitant]
  6. VOLTARENE EMULGEL (DICLOFENAC) (DICLOFENAC) [Concomitant]
  7. BISOPROLOL FUMARATE [Concomitant]

REACTIONS (20)
  - ABDOMINAL PAIN [None]
  - BLOOD ALKALINE PHOSPHATASE INCREASED [None]
  - GENERAL PHYSICAL HEALTH DETERIORATION [None]
  - NAUSEA [None]
  - PURPURA [None]
  - DECREASED APPETITE [None]
  - ARTHRALGIA [None]
  - DIARRHOEA [None]
  - C-REACTIVE PROTEIN INCREASED [None]
  - ESCHERICHIA TEST POSITIVE [None]
  - HYPOALBUMINAEMIA [None]
  - ALPHA 1 GLOBULIN ABNORMAL [None]
  - ANTINUCLEAR ANTIBODY POSITIVE [None]
  - ALANINE AMINOTRANSFERASE INCREASED [None]
  - VOMITING [None]
  - OEDEMA [None]
  - JOINT SWELLING [None]
  - WHITE BLOOD CELL COUNT INCREASED [None]
  - FATIGUE [None]
  - BLOOD IMMUNOGLOBULIN A INCREASED [None]
